FAERS Safety Report 21027916 (Version 3)
Quarter: 2025Q2

REPORT INFORMATION
  Report Type: Spontaneous
  Country: JP (occurrence: JP)
  Receive Date: 20220630
  Receipt Date: 20250620
  Transmission Date: 20250717
  Serious: Yes (Other)
  Sender: ORGANON
  Company Number: JP-ORGANON-O2206JPN002448

PATIENT
  Age: 67 Year
  Sex: Female

DRUGS (1)
  1. EZETIMIBE [Suspect]
     Active Substance: EZETIMIBE
     Dosage: 10 MG (10 MG/ DAY)
     Route: 048
     Dates: start: 202108, end: 202109

REACTIONS (1)
  - Drug-induced liver injury [Unknown]
